FAERS Safety Report 4665778-0 (Version None)
Quarter: 2005Q2

REPORT INFORMATION
  Report Type: 
  Country: None (occurrence: None)
  Receive Date: 20050519
  Receipt Date: 20050509
  Transmission Date: 20051028
  Serious: Yes (Hospitalization)
  Sender: FDA-Public Use
  Company Number: 200514068US

PATIENT
  Age: 40 Year
  Sex: Female

DRUGS (3)
  1. KETEK [Suspect]
     Dosage: DOSE: UNK
  2. FLOVENT [Concomitant]
  3. ALBUTEROL [Concomitant]

REACTIONS (1)
  - HEART RATE INCREASED [None]
